FAERS Safety Report 25368669 (Version 1)
Quarter: 2025Q2

REPORT INFORMATION
  Report Type: Spontaneous
  Country: FR (occurrence: FR)
  Receive Date: 20250528
  Receipt Date: 20250528
  Transmission Date: 20250716
  Serious: Yes (Hospitalization, Other)
  Sender: AZURITY PHARMACEUTICALS
  Company Number: FR-AZURITY PHARMACEUTICALS, INC.-AZR202505-001372

PATIENT
  Age: 76 Year
  Sex: Male

DRUGS (3)
  1. AMLODIPINE [Suspect]
     Active Substance: AMLODIPINE BESYLATE
     Indication: Hypertension
     Route: 065
  2. CANDESARTAN [Suspect]
     Active Substance: CANDESARTAN
     Indication: Hypertension
     Route: 065
  3. CELIPROLOL [Suspect]
     Active Substance: CELIPROLOL
     Indication: Hypertension
     Route: 065

REACTIONS (5)
  - Bradycardia [Unknown]
  - Suicide attempt [Recovered/Resolved]
  - Hypotension [Unknown]
  - Toxicity to various agents [Unknown]
  - Atrioventricular block complete [Unknown]
